FAERS Safety Report 8351905-0 (Version None)
Quarter: 2012Q2

REPORT INFORMATION
  Report Type: 
  Country: None (occurrence: None)
  Receive Date: 20120511
  Receipt Date: 20120509
  Transmission Date: 20120825
  Serious: No
  Sender: FDA-Public Use
  Company Number: US-PFIZER INC-2012113572

PATIENT
  Sex: Female
  Weight: 62.6 kg

DRUGS (1)
  1. CELEBREX [Suspect]
     Indication: ARTHRITIS
     Dosage: 200 MG, DAILY
     Route: 048
     Dates: start: 20120425, end: 20120503

REACTIONS (6)
  - PRESYNCOPE [None]
  - DRUG INEFFECTIVE [None]
  - HYPOTENSION [None]
  - JOINT STIFFNESS [None]
  - ARTHRALGIA [None]
  - NAUSEA [None]
